FAERS Safety Report 5468668-9 (Version None)
Quarter: 2007Q3

REPORT INFORMATION
  Report Type: 
  Country: None (occurrence: None)
  Receive Date: 20070926
  Receipt Date: 20070914
  Transmission Date: 20080115
  Serious: Yes (Hospitalization)
  Sender: FDA-Public Use
  Company Number: JP-PFIZER INC-2007073297

PATIENT
  Sex: Male

DRUGS (11)
  1. LIPITOR [Suspect]
     Indication: HYPERLIPIDAEMIA
     Dosage: DAILY DOSE:10MG
     Route: 048
  2. TENORMIN [Concomitant]
     Indication: HYPERTENSION
     Dosage: DAILY DOSE:50MG-FREQ:DAILY
     Route: 048
  3. ASPIRIN [Concomitant]
     Dosage: DAILY DOSE:100MG-FREQ:DAILY
     Route: 048
     Dates: start: 20011017
  4. LASIX [Concomitant]
     Dosage: TEXT:20 MG EVERY OTHER DAY
     Route: 048
  5. ALLOPURINOL [Concomitant]
  6. ADALAT [Concomitant]
     Indication: HYPERTENSION
     Dosage: DAILY DOSE:20MG-FREQ:DAILY
     Route: 048
  7. CANDESARTAN CILEXETIL [Concomitant]
     Indication: HYPERTENSION
     Dosage: DAILY DOSE:8MG-FREQ:DAILY
     Route: 048
     Dates: start: 20060418
  8. NORVASC [Concomitant]
     Indication: HYPERTENSION
     Dosage: DAILY DOSE:10MG-FREQ:DAILY
     Route: 048
     Dates: start: 20040315
  9. GASTER OD [Concomitant]
     Dosage: DAILY DOSE:10MG-FREQ:DAILY
     Route: 048
  10. ARTIST [Concomitant]
     Dosage: DAILY DOSE:10MG-FREQ:DAILY
     Route: 048
     Dates: start: 20050314
  11. URINORM [Concomitant]
     Dosage: DAILY DOSE:25MG-FREQ:DAILY
     Route: 048
     Dates: start: 20070222

REACTIONS (4)
  - BLOOD CREATINE PHOSPHOKINASE INCREASED [None]
  - BLOOD CREATININE INCREASED [None]
  - MYOGLOBINURIA [None]
  - RHABDOMYOLYSIS [None]
